FAERS Safety Report 5298827-X (Version None)
Quarter: 2007Q2

REPORT INFORMATION
  Report Type: 
  Country: None (occurrence: None)
  Receive Date: 20070417
  Receipt Date: 20070411
  Transmission Date: 20071010
  Serious: Yes (Death, Life-Threatening, Hospitalization)
  Sender: FDA-Public Use
  Company Number: AU-NOVOPROD-262658

PATIENT
  Age: 38 Year
  Sex: Male
  Weight: 80 kg

DRUGS (4)
  1. NOVOSEVEN [Suspect]
     Indication: HAEMORRHAGE
     Dosage: 6 MG, UNK
     Route: 042
     Dates: start: 20051017
  2. NOVOSEVEN [Suspect]
     Dosage: 6 UNK, UNK
     Route: 042
     Dates: start: 20051017
  3. NOVOSEVEN [Suspect]
     Dosage: 4.8 UNK, UNK
     Route: 042
     Dates: start: 20051017
  4. NOVOSEVEN [Suspect]
     Dosage: 4.8 MG, UNK
     Route: 042
     Dates: start: 20051017

REACTIONS (3)
  - ACUTE RESPIRATORY DISTRESS SYNDROME [None]
  - DISSEMINATED INTRAVASCULAR COAGULATION [None]
  - MULTI-ORGAN FAILURE [None]
